FAERS Safety Report 24656696 (Version 1)
Quarter: 2024Q4

REPORT INFORMATION
  Report Type: Spontaneous
  Country: US (occurrence: US)
  Receive Date: 20241124
  Receipt Date: 20241124
  Transmission Date: 20250115
  Serious: Yes (Other)
  Sender: CIPLA
  Company Number: US-CIPLA LTD.-2024US13338

PATIENT

DRUGS (1)
  1. MELOXICAM [Suspect]
     Active Substance: MELOXICAM
     Indication: Radiation fibrosis
     Dosage: UNK
     Route: 065

REACTIONS (4)
  - Neoplasm malignant [Not Recovered/Not Resolved]
  - Gastrointestinal haemorrhage [Not Recovered/Not Resolved]
  - Off label use [Unknown]
  - Dysarthria [Not Recovered/Not Resolved]
